FAERS Safety Report 4972652-9 (Version None)
Quarter: 2006Q1

REPORT INFORMATION
  Report Type: 
  Country: None (occurrence: None)
  Receive Date: 20060216
  Receipt Date: 20051101
  Transmission Date: 20060701
  Serious: Yes (Hospitalization)
  Sender: FDA-Public Use
  Company Number: 200511IM000692

PATIENT
  Age: 74 Year
  Sex: Female
  Weight: 135.1719 kg

DRUGS (19)
  1. BLINDED THERAPY (INTERFERON GAMMA-1B) [Suspect]
     Indication: IDIOPATHIC PULMONARY FIBROSIS
     Dosage: 200 UG, TIW, SUBCUTANEOUS
     Route: 058
     Dates: start: 20041201, end: 20051026
  2. VASOTEC [Concomitant]
  3. HYDROCHLOROTHIAZIDE [Concomitant]
  4. SYNTHROID [Concomitant]
  5. XALATAN [Concomitant]
  6. COSOPT DROPS [Concomitant]
  7. FIORINAL [Concomitant]
  8. ZOCOR [Concomitant]
  9. QUININE [Concomitant]
  10. PREDNISONE TAB [Concomitant]
  11. FOSAMAX [Concomitant]
  12. NOVOLOG MIX 70/30 [Concomitant]
  13. OXYCODONE [Concomitant]
  14. ZOLOFT [Concomitant]
  15. LOPERAMIDE [Concomitant]
  16. VALIUM [Concomitant]
  17. REGLAN [Concomitant]
  18. NEURONTIN [Concomitant]
  19. KADIAN [Concomitant]

REACTIONS (1)
  - UROSEPSIS [None]
